FAERS Safety Report 20964283 (Version 1)
Quarter: 2022Q2

REPORT INFORMATION
  Report Type: Spontaneous
  Country: GB (occurrence: GB)
  Receive Date: 20220615
  Receipt Date: 20220615
  Transmission Date: 20220721
  Serious: Yes (Hospitalization, Other)
  Sender: FDA-Public Use
  Company Number: GB-ANIPHARMA-2022-UK-000141

PATIENT
  Age: 27 Year
  Sex: Female

DRUGS (3)
  1. LANSOPRAZOLE [Suspect]
     Active Substance: LANSOPRAZOLE
     Indication: Gastric disorder
     Dosage: 30 MG ONCE
  2. DOMPERIDONE [Suspect]
     Active Substance: DOMPERIDONE
     Indication: Gastric disorder
     Dosage: 30 MG ONCE
  3. PHENYRAMIDOL [Concomitant]
     Active Substance: PHENYRAMIDOL

REACTIONS (2)
  - Kounis syndrome [Recovered/Resolved]
  - Electrocardiogram QT prolonged [Recovered/Resolved]
